FAERS Safety Report 7717038-9 (Version None)
Quarter: 2011Q3

REPORT INFORMATION
  Report Type: 
  Country: None (occurrence: None)
  Receive Date: 20110829
  Receipt Date: 20110825
  Transmission Date: 20111222
  Serious: Yes (Life-Threatening)
  Sender: FDA-Public Use
  Company Number: DE-B.I. PHARMACEUTICALS,INC./RIDGEFIELD-2011-DE-04790DE

PATIENT
  Sex: Male
  Weight: 110 kg

DRUGS (3)
  1. PRADAXA [Suspect]
     Indication: ATRIAL FIBRILLATION
  2. ANTIBIOTICS [Concomitant]
  3. PRADAXA [Suspect]
     Indication: CEREBRAL ISCHAEMIA
     Dosage: 300 MG
     Dates: start: 20110812, end: 20110825

REACTIONS (1)
  - RENAL FAILURE ACUTE [None]
